FAERS Safety Report 20182829 (Version 2)
Quarter: 2022Q1

REPORT INFORMATION
  Report Type: Spontaneous
  Country: TN (occurrence: None)
  Receive Date: 20211214
  Receipt Date: 20220105
  Transmission Date: 20220423
  Serious: Yes (Other)
  Sender: FDA-Public Use
  Company Number: TN-ROCHE-2973135

PATIENT
  Age: 41 Year
  Sex: Female

DRUGS (1)
  1. ZELBORAF [Suspect]
     Active Substance: VEMURAFENIB
     Indication: Histiocytosis
     Dosage: 240MGX2 BID (4TABLETS/DAY)
     Route: 065

REACTIONS (3)
  - Pancreatitis [Recovered/Resolved]
  - Off label use [Unknown]
  - Abdominal pain upper [Unknown]

NARRATIVE: CASE EVENT DATE: 20211019
